FAERS Safety Report 23646768 (Version 2)
Quarter: 2025Q3

REPORT INFORMATION
  Report Type: Report from Study
  Country: US (occurrence: US)
  Receive Date: 20240319
  Receipt Date: 20250725
  Transmission Date: 20251020
  Serious: Yes (Other)
  Sender: ABBVIE
  Company Number: US-ABBVIE-5681782

PATIENT
  Sex: Male

DRUGS (1)
  1. SKYRIZI [Suspect]
     Active Substance: RISANKIZUMAB-RZAA
     Indication: Psoriasis
     Route: 058
     Dates: start: 20220502

REACTIONS (5)
  - Skin papilloma [Recovering/Resolving]
  - Haemoglobin decreased [Recovering/Resolving]
  - Diabetes mellitus [Not Recovered/Not Resolved]
  - Alopecia [Unknown]
  - Cough [Not Recovered/Not Resolved]
